FAERS Safety Report 24392980 (Version 1)
Quarter: 2024Q4

REPORT INFORMATION
  Report Type: Spontaneous
  Country: CA (occurrence: CA)
  Receive Date: 20241003
  Receipt Date: 20241003
  Transmission Date: 20250115
  Serious: Yes (Hospitalization)
  Sender: TEVA
  Company Number: CA-TEVA-VS-3247811

PATIENT
  Age: 43 Year
  Sex: Male

DRUGS (9)
  1. QUETIAPINE [Suspect]
     Active Substance: QUETIAPINE
     Indication: Depression
     Route: 065
  2. ZOPICLONE [Suspect]
     Active Substance: ZOPICLONE
     Indication: Depression
     Route: 065
  3. BENZTROPINE [Suspect]
     Active Substance: BENZTROPINE
     Indication: Bipolar disorder
     Route: 065
  4. BREXPIPRAZOLE [Suspect]
     Active Substance: BREXPIPRAZOLE
     Indication: Depression
     Route: 065
  5. CLONAZEPAM [Suspect]
     Active Substance: CLONAZEPAM
     Indication: Bipolar disorder
     Route: 065
  6. KETAMINE [Suspect]
     Active Substance: KETAMINE
     Indication: Bipolar disorder
     Route: 065
  7. KETAMINE [Suspect]
     Active Substance: KETAMINE
     Indication: Bipolar disorder
     Route: 065
  8. LEVOMILNACIPRAN [Suspect]
     Active Substance: LEVOMILNACIPRAN
     Indication: Bipolar disorder
     Route: 065
  9. VORTIOXETINE [Suspect]
     Active Substance: VORTIOXETINE
     Indication: Depression
     Route: 065

REACTIONS (3)
  - Dissociation [Unknown]
  - Drug ineffective [Unknown]
  - Off label use [Unknown]
